FAERS Safety Report 25066295 (Version 2)
Quarter: 2025Q1

REPORT INFORMATION
  Report Type: Report from Study
  Country: US (occurrence: US)
  Receive Date: 20250312
  Receipt Date: 20250318
  Transmission Date: 20250409
  Serious: Yes (Other)
  Sender: STALLERGENES
  Company Number: US-STALCOR-2025-AER-00769

PATIENT
  Age: 14 Year
  Sex: Male

DRUGS (2)
  1. PALFORZIA [Suspect]
     Active Substance: PEANUT
     Indication: Food allergy
     Dosage: REACTIVE DOSE AT LEVEL 10, 240MG STARTED ON 24-FEB-2025
     Route: 048
     Dates: start: 20250224
  2. PALFORZIA [Suspect]
     Active Substance: PEANUT
     Dosage: IDE WAS INITIATED ON 11-OCT-2024
     Dates: start: 20241011

REACTIONS (3)
  - Bronchospasm [Recovered/Resolved]
  - Urticaria [Recovered/Resolved]
  - Pruritus [Recovered/Resolved]

NARRATIVE: CASE EVENT DATE: 20250305
